FAERS Safety Report 7657026-4 (Version None)
Quarter: 2011Q3

REPORT INFORMATION
  Report Type: 
  Country: None (occurrence: None)
  Receive Date: 20110804
  Receipt Date: 20110801
  Transmission Date: 20111222
  Serious: Yes (Other)
  Sender: FDA-Public Use
  Company Number: CA-PFIZER INC-2010089227

PATIENT
  Age: 87 Year
  Sex: Female

DRUGS (7)
  1. LOPRESSOR [Concomitant]
     Dosage: UNK
  2. HYDRA-ZIDE [Concomitant]
     Dosage: UNK
  3. VITAMIN D [Concomitant]
     Dosage: UNK
  4. PRILOSEC [Concomitant]
     Dosage: UNK
  5. CLONAZEPAM [Concomitant]
     Dosage: UNK
  6. AROMASIN [Suspect]
     Dosage: 25 MG, 1X/DAY
     Route: 048
     Dates: start: 20100615
  7. DIDROCAL [Concomitant]
     Dosage: UNK

REACTIONS (10)
  - CONSTIPATION [None]
  - MYALGIA [None]
  - SOMNOLENCE [None]
  - MALAISE [None]
  - ASTHENIA [None]
  - VAGINAL HAEMORRHAGE [None]
  - DIARRHOEA [None]
  - INSOMNIA [None]
  - FATIGUE [None]
  - ALOPECIA [None]
